FAERS Safety Report 4603643-5 (Version None)
Quarter: 2005Q1

REPORT INFORMATION
  Report Type: 
  Country: None (occurrence: None)
  Receive Date: 20050308
  Receipt Date: 20050308
  Transmission Date: 20050727
  Serious: Yes (Other)
  Sender: FDA-Public Use
  Company Number: None

PATIENT
  Age: 46 Year
  Sex: Male
  Weight: 91.6266 kg

DRUGS (3)
  1. ZYPREXA [Suspect]
     Indication: BIPOLAR DISORDER
     Dosage: 1 AT HS
  2. WELLBUTRIN XL [Concomitant]
  3. LEXAPRO [Concomitant]

REACTIONS (1)
  - BLOOD TESTOSTERONE DECREASED [None]
